FAERS Safety Report 16003425 (Version 2)
Quarter: 2019Q1

REPORT INFORMATION
  Report Type: Spontaneous
  Country: US (occurrence: US)
  Receive Date: 20190226
  Receipt Date: 20190306
  Transmission Date: 20190418
  Serious: No
  Sender: FDA-Public Use
  Company Number: US-009507513-1902USA002770

PATIENT
  Age: 18 Year
  Sex: Female
  Weight: 80.27 kg

DRUGS (1)
  1. NEXPLANON [Suspect]
     Active Substance: ETONOGESTREL
     Indication: CONTRACEPTION
     Dosage: 1 IMPLANT (68 MG)
     Route: 059
     Dates: start: 20171228, end: 20190201

REACTIONS (3)
  - Menstruation irregular [Unknown]
  - Incorrect product administration duration [Unknown]
  - Device breakage [Unknown]

NARRATIVE: CASE EVENT DATE: 20190201
